FAERS Safety Report 17012720 (Version 1)
Quarter: 2019Q4

REPORT INFORMATION
  Report Type: Spontaneous
  Country: US (occurrence: US)
  Receive Date: 20191109
  Receipt Date: 20191109
  Transmission Date: 20200122
  Serious: No
  Sender: FDA-Public Use
  Company Number: US-DRREDDYS-USA/USA/19/0115746

PATIENT
  Age: 81 Year
  Sex: Female
  Weight: 57.15 kg

DRUGS (1)
  1. NICOTINE. [Suspect]
     Active Substance: NICOTINE
     Indication: TOBACCO USER
     Route: 062
     Dates: start: 201908

REACTIONS (6)
  - Product use issue [Unknown]
  - Drug ineffective [Unknown]
  - Application site rash [Unknown]
  - Treatment noncompliance [Unknown]
  - Product quality issue [Unknown]
  - Weight increased [Unknown]

NARRATIVE: CASE EVENT DATE: 20191004
